FAERS Safety Report 12228366 (Version 1)
Quarter: 2016Q2

REPORT INFORMATION
  Report Type: Other
  Country: US (occurrence: US)
  Receive Date: 20160401
  Receipt Date: 20160401
  Transmission Date: 20160815
  Serious: Yes (Hospitalization)
  Sender: FDA-Public Use
  Company Number: US-LUPIN PHARMACEUTICALS INC.-2016-01247

PATIENT
  Age: 29 Year
  Sex: Male

DRUGS (3)
  1. BUPROPION. [Suspect]
     Active Substance: BUPROPION
     Indication: DEPRESSION
     Dosage: 150 MG
     Route: 065
  2. DOXYCYCLINE. [Suspect]
     Active Substance: DOXYCYCLINE
     Indication: ACNE
     Route: 065
  3. ACETAMINOPHEN-OXYCODONE [Concomitant]
     Indication: BACK PAIN
     Dosage: 325MG/5MG
     Route: 048

REACTIONS (1)
  - Drug-induced liver injury [Recovered/Resolved]
